FAERS Safety Report 24259016 (Version 5)
Quarter: 2024Q4

REPORT INFORMATION
  Report Type: Spontaneous
  Country: US (occurrence: US)
  Receive Date: 20240828
  Receipt Date: 20241014
  Transmission Date: 20250114
  Serious: No
  Sender: PFIZER
  Company Number: US-PFIZER INC-202400244996

PATIENT
  Age: 69 Year
  Sex: Female
  Weight: 67.8 kg

DRUGS (1)
  1. IBRANCE [Suspect]
     Active Substance: PALBOCICLIB
     Indication: Breast cancer female
     Dosage: 125 MG, CYCLIC, TAKE 1 TABLET DAILY (TAKE ON DAY 1 THROUGH 21 OF EACH 28 DAY CYCLE)
     Route: 048

REACTIONS (2)
  - Pain [Unknown]
  - Constipation [Unknown]
